FAERS Safety Report 5455651-2 (Version None)
Quarter: 2007Q3

REPORT INFORMATION
  Report Type: 
  Country: None (occurrence: None)
  Receive Date: 20070918
  Receipt Date: 20070228
  Transmission Date: 20080115
  Serious: Yes (Hospitalization, Other)
  Sender: FDA-Public Use
  Company Number: US-ASTRAZENECA-2006UW22397

PATIENT
  Sex: Male
  Weight: 84.1 kg

DRUGS (3)
  1. SEROQUEL [Suspect]
     Indication: DEPRESSION
     Route: 048
     Dates: start: 20041201
  2. ZYPREXA [Concomitant]
     Dates: start: 19990101, end: 20020101
  3. CYMBALTA [Concomitant]
     Dates: start: 20060301

REACTIONS (2)
  - DIABETES MELLITUS [None]
  - DIABETIC COMA [None]
